FAERS Safety Report 23465290 (Version 1)
Quarter: 2024Q1

REPORT INFORMATION
  Report Type: Spontaneous
  Country: None (occurrence: JP)
  Receive Date: 20240201
  Receipt Date: 20240201
  Transmission Date: 20240410
  Serious: Yes (Life-Threatening, Hospitalization, Other)
  Sender: FDA-Public Use
  Company Number: JP-Breckenridge Pharmaceutical, Inc.-2152389

PATIENT
  Sex: Male

DRUGS (4)
  1. DULOXETINE [Suspect]
     Active Substance: DULOXETINE
     Route: 048
  2. ZILMLO(AZILSARTAN/AMLODIPINE BESILATE ) [Concomitant]
     Route: 048
  3. RABEPRAZOLE SODIUM [Concomitant]
     Active Substance: RABEPRAZOLE SODIUM
     Route: 048
  4. AZILSARTAN KAMEDOXOMIL [Concomitant]
     Active Substance: AZILSARTAN KAMEDOXOMIL
     Route: 048

REACTIONS (8)
  - Dizziness [Unknown]
  - Vertigo [Unknown]
  - Visual impairment [Unknown]
  - Nausea [Unknown]
  - Hospitalisation [Unknown]
  - Constipation [Unknown]
  - Cerebral haemorrhage [Unknown]
  - Muscle spasms [Recovering/Resolving]
